FAERS Safety Report 6177050-0 (Version None)
Quarter: 2009Q2

REPORT INFORMATION
  Report Type: 
  Country: None (occurrence: None)
  Receive Date: 20090501
  Receipt Date: 20090423
  Transmission Date: 20091009
  Serious: Yes (Hospitalization)
  Sender: FDA-Public Use
  Company Number: AT-AMGEN-UK344201

PATIENT
  Age: 39 Year
  Sex: Female

DRUGS (3)
  1. NEUPOGEN [Suspect]
     Indication: BLOOD STEM CELL HARVEST
     Route: 058
  2. PLASMA [Concomitant]
     Route: 065
  3. ANTICOAGULANT CITRATE DEXTROSE [Concomitant]
     Route: 065

REACTIONS (1)
  - SUBDURAL HAEMORRHAGE [None]
